FAERS Safety Report 16559806 (Version 1)
Quarter: 2019Q3

REPORT INFORMATION
  Report Type: Spontaneous
  Country: IL (occurrence: IL)
  Receive Date: 20190711
  Receipt Date: 20190711
  Transmission Date: 20191004
  Serious: Yes (Hospitalization, Other)
  Sender: FDA-Public Use
  Company Number: IL-SA-2019SA186991

PATIENT
  Sex: Male

DRUGS (1)
  1. DUPIXENT [Suspect]
     Active Substance: DUPILUMAB

REACTIONS (7)
  - Condition aggravated [Not Recovered/Not Resolved]
  - Abdominal pain upper [Unknown]
  - Conjunctivitis [Not Recovered/Not Resolved]
  - Crohn^s disease [Unknown]
  - Diarrhoea [Unknown]
  - Drug ineffective [Unknown]
  - Eye discharge [Not Recovered/Not Resolved]
